FAERS Safety Report 8127098-1 (Version None)
Quarter: 2012Q1

REPORT INFORMATION
  Report Type: 
  Country: None (occurrence: None)
  Receive Date: 20120210
  Receipt Date: 20120206
  Transmission Date: 20120608
  Serious: Yes (Other)
  Sender: FDA-Public Use
  Company Number: IE-US-EMD SERONO, INC.-7108428

PATIENT
  Sex: Female

DRUGS (3)
  1. SAIZEN [Suspect]
     Indication: CUSHING'S SYNDROME
     Route: 058
     Dates: start: 20111220
  2. SAIZEN [Suspect]
     Indication: HYPOTHALAMO-PITUITARY DISORDER
  3. CORTISONE ACETATE [Concomitant]
     Indication: CUSHING'S SYNDROME

REACTIONS (3)
  - HEADACHE [None]
  - URINARY TRACT INFECTION [None]
  - CARPAL TUNNEL SYNDROME [None]
